FAERS Safety Report 16777142 (Version 1)
Quarter: 2019Q3

REPORT INFORMATION
  Report Type: Spontaneous
  Country: US (occurrence: US)
  Receive Date: 20190905
  Receipt Date: 20190905
  Transmission Date: 20191005
  Serious: Yes (Death)
  Sender: FDA-Public Use
  Company Number: US-AMNEAL PHARMACEUTICALS-2019AMN00799

PATIENT
  Sex: Male
  Weight: 27.98 kg

DRUGS (2)
  1. VIGABATRIN. [Suspect]
     Active Substance: VIGABATRIN
     Dosage: 5 DF, 5 PACKET VIA J-TUBE
  2. VIGABATRIN. [Suspect]
     Active Substance: VIGABATRIN
     Indication: IDIOPATHIC GENERALISED EPILEPSY
     Dosage: 250 MG, 2X/DAY

REACTIONS (3)
  - Product packaging quantity issue [Unknown]
  - Product use issue [Unknown]
  - Adverse event [Fatal]
